FAERS Safety Report 7779816-X (Version None)
Quarter: 2011Q3

REPORT INFORMATION
  Report Type: 
  Country: None (occurrence: None)
  Receive Date: 20110927
  Receipt Date: 20110926
  Transmission Date: 20111222
  Serious: Yes (Other)
  Sender: FDA-Public Use
  Company Number: JP-PFIZER INC-2011203773

PATIENT
  Age: 84 Year
  Sex: Male
  Weight: 55 kg

DRUGS (8)
  1. ADOAIR DISKUS [Concomitant]
     Dosage: UNK
  2. LANSOPRAZOLE [Concomitant]
     Dosage: 15 MG
  3. DUTASTERIDE [Concomitant]
     Dosage: 0.5 MG
  4. AMLODIPINE [Concomitant]
     Dosage: 5 MG
  5. CRESTOR [Concomitant]
     Dosage: 2.5 MG
  6. URIEF [Concomitant]
     Dosage: 4 MG
  7. VARENICLINE TARTRATE [Suspect]
     Indication: SMOKING CESSATION THERAPY
     Dosage: 1 MG, 2X/DAY
     Route: 048
     Dates: start: 20110628, end: 20110810
  8. LASIX [Concomitant]
     Dosage: 20 MG

REACTIONS (4)
  - NAUSEA [None]
  - ALTERED STATE OF CONSCIOUSNESS [None]
  - MALAISE [None]
  - DECREASED APPETITE [None]
